FAERS Safety Report 17346625 (Version 1)
Quarter: 2020Q1

REPORT INFORMATION
  Report Type: Report from Study
  Country: US (occurrence: US)
  Receive Date: 20200129
  Receipt Date: 20200129
  Transmission Date: 20200409
  Serious: No
  Sender: FDA-Public Use
  Company Number: US-EXELIXIS-CABO-19023210

PATIENT
  Sex: Male
  Weight: 64.98 kg

DRUGS (2)
  1. CABOMETYX [Suspect]
     Active Substance: CABOZANTINIB S-MALATE
     Indication: HEPATIC CANCER
     Dosage: 60 MG, QD (ON AN EMPTY STOMACH IN THE MORNING)
     Route: 048
     Dates: start: 20190726
  2. CABOMETYX [Suspect]
     Active Substance: CABOZANTINIB S-MALATE
     Dosage: 60 MG, QD (ON AN EMPTY STOMACH IN THE MORNING)
     Route: 048

REACTIONS (7)
  - Hypoaesthesia [Unknown]
  - Appetite disorder [Unknown]
  - Abdominal pain upper [Unknown]
  - Blood pressure increased [Unknown]
  - Chest pain [Unknown]
  - Dehydration [Unknown]
  - Diarrhoea [Unknown]
